FAERS Safety Report 5920047-3 (Version None)
Quarter: 2008Q4

REPORT INFORMATION
  Report Type: 
  Country: None (occurrence: None)
  Receive Date: 20081014
  Receipt Date: 20081006
  Transmission Date: 20090506
  Serious: Yes (Other)
  Sender: FDA-Public Use
  Company Number: CHPA2008US16952

PATIENT
  Age: 81 Year
  Sex: Female

DRUGS (1)
  1. FERROUS SULFATE TAB [Suspect]
     Indication: MINERAL SUPPLEMENTATION
     Dosage: 160 MG, QD, ORAL
     Route: 048
     Dates: start: 20080601

REACTIONS (1)
  - COELIAC DISEASE [None]
